FAERS Safety Report 17096857 (Version 1)
Quarter: 2019Q4

REPORT INFORMATION
  Report Type: Spontaneous
  Country: JP (occurrence: JP)
  Receive Date: 20191202
  Receipt Date: 20191202
  Transmission Date: 20200122
  Serious: Yes (Death, Life-Threatening, Hospitalization)
  Sender: FDA-Public Use
  Company Number: JP-STRIDES ARCOLAB LIMITED-2019SP012040

PATIENT
  Age: 60 Year
  Sex: Female

DRUGS (7)
  1. TACROLIMUS. [Suspect]
     Active Substance: TACROLIMUS
     Indication: LUNG TRANSPLANT
     Dosage: UNK,1.9 MG/DAY
     Route: 048
  2. MYCOPHENOLATE MOFETIL. [Suspect]
     Active Substance: MYCOPHENOLATE MOFETIL
     Indication: IMMUNOSUPPRESSANT DRUG THERAPY
     Dosage: UNK, 500MG/DAY
     Route: 048
  3. TACROLIMUS. [Suspect]
     Active Substance: TACROLIMUS
     Indication: IMMUNOSUPPRESSANT DRUG THERAPY
     Dosage: DOSE REDUCED TO 0.5 MILLIGRAM IN 5 WEEKS
     Route: 048
  4. PREDNISOLONE. [Suspect]
     Active Substance: PREDNISOLONE
     Indication: IMMUNOSUPPRESSANT DRUG THERAPY
     Dosage: UNK,5MG/DAY
     Route: 048
  5. ACICLOVIR [Concomitant]
     Active Substance: ACYCLOVIR
     Indication: HERPES SIMPLEX
     Dosage: UNK
     Route: 065
  6. MYCOPHENOLATE MOFETIL. [Suspect]
     Active Substance: MYCOPHENOLATE MOFETIL
     Indication: LUNG TRANSPLANT
     Dosage: DOSE REDUCED TO 250 MILLIGRAM IN 5 WEEKS
     Route: 048
  7. PREDNISOLONE. [Suspect]
     Active Substance: PREDNISOLONE
     Indication: LUNG TRANSPLANT

REACTIONS (14)
  - Respiratory failure [Fatal]
  - Confabulation [Unknown]
  - Delusion [Unknown]
  - Decreased activity [Unknown]
  - Apathy [Unknown]
  - Immune reconstitution inflammatory syndrome [Unknown]
  - Urinary incontinence [Unknown]
  - Locked-in syndrome [Unknown]
  - Off label use [Unknown]
  - Hyperreflexia [Unknown]
  - JC virus infection [Unknown]
  - Poverty of speech [Unknown]
  - Progressive multifocal leukoencephalopathy [Unknown]
  - Dizziness [Unknown]
